FAERS Safety Report 21566937 (Version 4)
Quarter: 2023Q1

REPORT INFORMATION
  Report Type: Spontaneous
  Country: US (occurrence: US)
  Receive Date: 20221108
  Receipt Date: 20230216
  Transmission Date: 20230418
  Serious: Yes (Other)
  Sender: FDA-Public Use
  Company Number: US-PFIZER INC-PV202200096606

PATIENT
  Age: 59 Year
  Sex: Female

DRUGS (3)
  1. IBRANCE [Suspect]
     Active Substance: PALBOCICLIB
     Indication: Breast cancer female
     Dosage: 125 MG
  2. IBRANCE [Suspect]
     Active Substance: PALBOCICLIB
     Dosage: 100 MG
  3. IBRANCE [Suspect]
     Active Substance: PALBOCICLIB
     Dosage: 75 MG

REACTIONS (8)
  - Pneumothorax [Unknown]
  - Pulmonary oedema [Unknown]
  - Neoplasm progression [Unknown]
  - Fatigue [Unknown]
  - Pruritus [Unknown]
  - Lymphoedema [Unknown]
  - Full blood count decreased [Not Recovered/Not Resolved]
  - White blood cell count decreased [Unknown]
